FAERS Safety Report 10210841 (Version 6)
Quarter: 2014Q4

REPORT INFORMATION
  Report Type: Report from Study
  Country: KR (occurrence: KR)
  Receive Date: 20140602
  Receipt Date: 20141031
  Transmission Date: 20150528
  Serious: Yes (Hospitalization, Other)
  Sender: FDA-Public Use
  Company Number: KR-GLAXOSMITHKLINE-B0998612A

PATIENT
  Age: 28 Year
  Sex: Female
  Weight: 56 kg

DRUGS (5)
  1. PHAZYME [Concomitant]
     Active Substance: DIMETHICONE 410
     Indication: DYSPEPSIA
     Route: 048
     Dates: start: 20140602, end: 20140602
  2. BELIMUMAB [Suspect]
     Active Substance: BELIMUMAB
     Indication: SYSTEMIC LUPUS ERYTHEMATOSUS
     Route: 042
     Dates: start: 20120116
  3. PANTOPRAZOLE [Concomitant]
     Active Substance: PANTOPRAZOLE SODIUM
     Indication: GASTROINTESTINAL TRACT IRRITATION
     Route: 048
     Dates: start: 20120123
  4. CEFOTAXIME [Concomitant]
     Active Substance: CEFOTAXIME\CEFOTAXIME SODIUM
     Indication: INFECTION PROPHYLAXIS
     Route: 042
     Dates: start: 20140523, end: 20140527
  5. FERROUS SULFATE [Concomitant]
     Active Substance: FERROUS SULFATE\FERROUS SULFATE, DRIED
     Indication: ANAEMIA PROPHYLAXIS
     Route: 048
     Dates: start: 20140529

REACTIONS (1)
  - Systemic lupus erythematosus [Recovered/Resolved]

NARRATIVE: CASE EVENT DATE: 20140522
